FAERS Safety Report 9013260 (Version 2)
Quarter: 2013Q4

REPORT INFORMATION
  Report Type: Spontaneous
  Country: US (occurrence: US)
  Receive Date: 20130114
  Receipt Date: 20131015
  Transmission Date: 20140711
  Serious: Yes (Hospitalization)
  Sender: FDA-Public Use
  Company Number: US-009507513-1301USA005247

PATIENT
  Sex: Female
  Weight: 68.27 kg

DRUGS (1)
  1. NUVARING [Suspect]
     Indication: CONTRACEPTION
     Dosage: UNK
     Route: 067
     Dates: start: 200504, end: 200601

REACTIONS (5)
  - Chest pain [Unknown]
  - Deep vein thrombosis [Unknown]
  - Coagulopathy [Unknown]
  - Maternal exposure before pregnancy [Recovered/Resolved]
  - Migraine [Unknown]
